FAERS Safety Report 6888531-6 (Version None)
Quarter: 2010Q3

REPORT INFORMATION
  Report Type: 
  Country: None (occurrence: None)
  Receive Date: 20100730
  Receipt Date: 20100721
  Transmission Date: 20110219
  Serious: Yes (Life-Threatening)
  Sender: FDA-Public Use
  Company Number: UG-ABBOTT-10P-165-0656574-00

PATIENT
  Sex: Female

DRUGS (4)
  1. ALUVIA TABLETS [Suspect]
     Indication: MALARIA PROPHYLAXIS
     Route: 048
  2. ALUVIA TABLETS [Suspect]
     Indication: HIV INFECTION
  3. ZIDOVUDINE [Concomitant]
     Indication: HIV INFECTION
  4. LAMIVUDINE [Concomitant]
     Indication: HIV INFECTION

REACTIONS (1)
  - NEUTROPENIA [None]
